FAERS Safety Report 12247787 (Version 1)
Quarter: 2016Q2

REPORT INFORMATION
  Report Type: Report from Study
  Country: CA (occurrence: CA)
  Receive Date: 20160408
  Receipt Date: 20160408
  Transmission Date: 20160815
  Serious: Yes (Other)
  Sender: FDA-Public Use
  Company Number: CA-ROCHE-1736047

PATIENT
  Age: 65 Year
  Sex: Female

DRUGS (10)
  1. DIPHENHYDRAMINE HCL [Concomitant]
     Active Substance: DIPHENHYDRAMINE HYDROCHLORIDE
     Route: 048
     Dates: start: 20150410
  2. OXYCODONE [Concomitant]
     Active Substance: OXYCODONE
  3. SOLU-CORTEF [Concomitant]
     Active Substance: HYDROCORTISONE SODIUM SUCCINATE
     Route: 042
     Dates: start: 20151022
  4. MELOXICAM. [Concomitant]
     Active Substance: MELOXICAM
  5. RITUXAN [Suspect]
     Active Substance: RITUXIMAB
     Indication: RHEUMATOID ARTHRITIS
     Dosage: DAY 1,15
     Route: 042
     Dates: start: 20150410
  6. METHYLPREDNISOLONE. [Suspect]
     Active Substance: METHYLPREDNISOLONE
     Indication: PRODUCT USED FOR UNKNOWN INDICATION
     Dosage: DAY 1,15
     Route: 042
     Dates: start: 20150410, end: 20151008
  7. DIAZEPAM. [Concomitant]
     Active Substance: DIAZEPAM
  8. PROMETRIUM [Concomitant]
     Active Substance: PROGESTERONE
  9. ACETAMINOPHEN. [Concomitant]
     Active Substance: ACETAMINOPHEN
     Route: 048
     Dates: start: 20150410
  10. OXAZEPAM. [Concomitant]
     Active Substance: OXAZEPAM

REACTIONS (5)
  - Urogenital disorder [Unknown]
  - Swelling face [Unknown]
  - White blood cells urine [Unknown]
  - Heart rate increased [Unknown]
  - Joint injury [Unknown]

NARRATIVE: CASE EVENT DATE: 201510
